FAERS Safety Report 9268113 (Version 1)
Quarter: 2013Q2

REPORT INFORMATION
  Report Type: Spontaneous
  Country: US (occurrence: US)
  Receive Date: 20130502
  Receipt Date: 20130502
  Transmission Date: 20140414
  Serious: Yes (Hospitalization)
  Sender: FDA-Public Use
  Company Number: US-ALEXION-A201201670

PATIENT
  Age: 47 Year
  Sex: Female
  Weight: 54.42 kg

DRUGS (3)
  1. SOLIRIS 300MG [Suspect]
     Indication: PAROXYSMAL NOCTURNAL HAEMOGLOBINURIA
     Dosage: 900 MG, Q2W
     Route: 042
     Dates: start: 2009
  2. SOLIRIS 300MG [Suspect]
     Dosage: 600 MG, QW
     Route: 042
     Dates: start: 20091009, end: 2009
  3. IMITREX [Concomitant]
     Indication: PRODUCT USED FOR UNKNOWN INDICATION
     Dosage: 50 MG, SINGLE
     Route: 048

REACTIONS (2)
  - Anxiety [Recovered/Resolved]
  - Gastrooesophageal reflux disease [Recovered/Resolved]
